FAERS Safety Report 15126983 (Version 3)
Quarter: 2018Q4

REPORT INFORMATION
  Report Type: Spontaneous
  Country: FR (occurrence: FR)
  Receive Date: 20180710
  Receipt Date: 20181004
  Transmission Date: 20190204
  Serious: Yes (Hospitalization, Other)
  Sender: FDA-Public Use
  Company Number: FR-BRISTOL-MYERS SQUIBB COMPANY-BMS-2018-055958

PATIENT
  Age: 23 Year
  Sex: Male
  Weight: 79 kg

DRUGS (1)
  1. KENACORT [Suspect]
     Active Substance: TRIAMCINOLONE
     Indication: KELOID SCAR
     Route: 058
     Dates: start: 20180404, end: 20180404

REACTIONS (3)
  - Loss of consciousness [Recovered/Resolved]
  - Product use issue [Unknown]
  - Anaphylactic reaction [Recovered/Resolved]

NARRATIVE: CASE EVENT DATE: 20180404
